FAERS Safety Report 14097589 (Version 1)
Quarter: 2017Q4

REPORT INFORMATION
  Report Type: Spontaneous
  Country: FR (occurrence: FR)
  Receive Date: 20171017
  Receipt Date: 20171017
  Transmission Date: 20180321
  Serious: Yes (Hospitalization)
  Sender: FDA-Public Use
  Company Number: FR-MERCK KGAA-2030293

PATIENT
  Sex: Female

DRUGS (1)
  1. NOVOTHYROX [Suspect]
     Active Substance: LEVOTHYROXINE SODIUM
     Indication: PRODUCT USED FOR UNKNOWN INDICATION

REACTIONS (7)
  - Vomiting [None]
  - Impaired driving ability [None]
  - Vestibular neuronitis [None]
  - Dizziness [None]
  - Blood pressure increased [None]
  - Blood thyroid stimulating hormone increased [None]
  - Balance disorder [None]

NARRATIVE: CASE EVENT DATE: 20170721
